FAERS Safety Report 9483706 (Version 2)
Quarter: 2013Q3

REPORT INFORMATION
  Report Type: Spontaneous
  Country: BR (occurrence: BR)
  Receive Date: 20130828
  Receipt Date: 20130829
  Transmission Date: 20140515
  Serious: Yes (Hospitalization, Other)
  Sender: FDA-Public Use
  Company Number: BR-JNJFOC-20130814300

PATIENT
  Age: 58 Year
  Sex: Female

DRUGS (10)
  1. REMICADE [Suspect]
     Indication: CROHN^S DISEASE
     Route: 042
     Dates: start: 20120119
  2. REMICADE [Suspect]
     Indication: CROHN^S DISEASE
     Route: 042
     Dates: start: 201306
  3. REMICADE [Suspect]
     Indication: CROHN^S DISEASE
     Route: 042
     Dates: start: 201302
  4. REMICADE [Suspect]
     Indication: CROHN^S DISEASE
     Route: 042
     Dates: start: 201301
  5. CARVEDILOL [Concomitant]
     Indication: ATRIAL FIBRILLATION
     Route: 065
  6. ATORVASTATIN [Concomitant]
     Indication: ATRIAL FIBRILLATION
     Route: 065
  7. MAREVAN [Concomitant]
     Indication: ATRIAL FIBRILLATION
     Route: 065
  8. SPIRONOLACTONE [Concomitant]
     Indication: ATRIAL FIBRILLATION
     Route: 065
  9. OMEPRAZOLE [Concomitant]
     Indication: GASTROINTESTINAL DISORDER THERAPY
     Route: 065
  10. DIGOXINA [Concomitant]
     Indication: ATRIAL FIBRILLATION
     Route: 065

REACTIONS (3)
  - Cerebrovascular accident [Recovered/Resolved]
  - Hypersensitivity [Recovered/Resolved]
  - Surgery [Recovered/Resolved]
